FAERS Safety Report 7687714-5 (Version None)
Quarter: 2011Q3

REPORT INFORMATION
  Report Type: 
  Country: None (occurrence: None)
  Receive Date: 20110817
  Receipt Date: 20110810
  Transmission Date: 20111222
  Serious: Yes (Hospitalization, Other)
  Sender: FDA-Public Use
  Company Number: US-BAYER-201012813NA

PATIENT
  Age: 47 Year
  Sex: Female

DRUGS (10)
  1. BETASERON [Suspect]
     Dosage: UNK
     Dates: start: 20100901, end: 20100904
  2. EXTRA STRENGTH TYLENOL [Concomitant]
     Indication: PRODUCT USED FOR UNKNOWN INDICATION
  3. BETASERON [Suspect]
     Dosage: 4 MIU, QOD
     Route: 058
     Dates: start: 20110208, end: 20110728
  4. FAMPRIDINE [Concomitant]
     Dosage: UNK
     Dates: start: 20101110, end: 20110117
  5. BETASERON [Suspect]
     Dosage: 8 MIU, QOD
     Route: 058
     Dates: start: 20100920, end: 20110115
  6. COPAXONE [Concomitant]
     Dosage: UNK
     Dates: start: 20100901, end: 20100904
  7. ACETAMINOPHEN [Concomitant]
     Indication: PREMEDICATION
  8. BETASERON [Suspect]
     Indication: RELAPSING-REMITTING MULTIPLE SCLEROSIS
     Dosage: 8 MIU, QOD
     Route: 058
     Dates: start: 20091216, end: 20100628
  9. PROVIGIL [Concomitant]
  10. BETASERON [Suspect]
     Dosage: 8 MIU, QOD
     Route: 058
     Dates: start: 20110806

REACTIONS (23)
  - ROAD TRAFFIC ACCIDENT [None]
  - ABDOMINAL DISTENSION [None]
  - INFLUENZA LIKE ILLNESS [None]
  - NAUSEA [None]
  - MUSCULAR WEAKNESS [None]
  - URINARY TRACT INFECTION [None]
  - BACK PAIN [None]
  - PAIN [None]
  - INFECTED SKIN ULCER [None]
  - ASTHENIA [None]
  - PARAESTHESIA [None]
  - MYOCARDIAL STRAIN [None]
  - OEDEMA PERIPHERAL [None]
  - FLUID RETENTION [None]
  - VIITH NERVE PARALYSIS [None]
  - LETHARGY [None]
  - CHOLECYSTECTOMY [None]
  - PNEUMONIA ASPIRATION [None]
  - MULTIPLE SCLEROSIS RELAPSE [None]
  - FATIGUE [None]
  - CHOKING [None]
  - MULTIPLE SCLEROSIS [None]
  - DYSPHAGIA [None]
